FAERS Safety Report 13041036 (Version 1)
Quarter: 2016Q4

REPORT INFORMATION
  Report Type: Spontaneous
  Country: US (occurrence: US)
  Receive Date: 20161219
  Receipt Date: 20161219
  Transmission Date: 20170207
  Serious: No
  Sender: FDA-Public Use
  Company Number: US-ROCHE-1072110

PATIENT
  Age: 51 Year
  Sex: Male

DRUGS (2)
  1. ROPINIROLE. [Concomitant]
     Active Substance: ROPINIROLE
     Indication: RESTLESS LEGS SYNDROME
     Route: 048
  2. ZELBORAF [Suspect]
     Active Substance: VEMURAFENIB
     Indication: METASTATIC MALIGNANT MELANOMA
     Route: 048
     Dates: start: 201208

REACTIONS (16)
  - Eye irritation [Unknown]
  - Arthralgia [Unknown]
  - Swelling [Unknown]
  - Decreased appetite [Unknown]
  - Fatigue [Unknown]
  - Oral discomfort [Unknown]
  - Headache [Unknown]
  - Rash [Unknown]
  - Muscle spasms [Not Recovered/Not Resolved]
  - Mass [Unknown]
  - Nausea [Unknown]
  - Melanocytic naevus [Unknown]
  - Alopecia [Unknown]
  - Brain neoplasm [Not Recovered/Not Resolved]
  - Sunburn [Unknown]
  - Restless legs syndrome [Not Recovered/Not Resolved]

NARRATIVE: CASE EVENT DATE: 20120926
